FAERS Safety Report 9712987 (Version 1)
Quarter: 2013Q4

REPORT INFORMATION
  Report Type: Spontaneous
  Country: US (occurrence: US)
  Receive Date: 20131126
  Receipt Date: 20131126
  Transmission Date: 20140711
  Serious: No
  Sender: FDA-Public Use
  Company Number: US-BRISTOL-MYERS SQUIBB COMPANY-18960096

PATIENT
  Age: 58 Year
  Sex: Female

DRUGS (1)
  1. BYDUREON 2MG SUSPENSION [Suspect]
     Route: 058
     Dates: start: 20130514

REACTIONS (6)
  - Injection site erythema [Unknown]
  - Injection site pruritus [Not Recovered/Not Resolved]
  - Injection site nodule [Unknown]
  - Injection site pain [Unknown]
  - Injection site discolouration [Unknown]
  - Pruritus [Unknown]
